FAERS Safety Report 21054419 (Version 1)
Quarter: 2022Q3

REPORT INFORMATION
  Report Type: Spontaneous
  Country: US (occurrence: US)
  Receive Date: 20220707
  Receipt Date: 20220707
  Transmission Date: 20221027
  Serious: No
  Sender: FDA-Public Use
  Company Number: US-PFIZER INC-202200920051

PATIENT
  Age: 79 Year
  Sex: Male
  Weight: 64.41 kg

DRUGS (1)
  1. GABAPENTIN [Suspect]
     Active Substance: GABAPENTIN
     Indication: Nerve compression
     Dosage: 300MG, TOOK TWO
     Dates: start: 20220628, end: 20220629

REACTIONS (4)
  - Off label use [Unknown]
  - Intentional dose omission [Unknown]
  - Pain [Recovered/Resolved]
  - Gait disturbance [Recovered/Resolved]
